FAERS Safety Report 9331244 (Version 1)
Quarter: 2013Q2

REPORT INFORMATION
  Report Type: Spontaneous
  Country: US (occurrence: US)
  Receive Date: 20130605
  Receipt Date: 20130605
  Transmission Date: 20140414
  Serious: Yes (Other)
  Sender: FDA-Public Use
  Company Number: US-PFIZER INC-2013168818

PATIENT
  Age: 65 Year
  Sex: Male
  Weight: 65.76 kg

DRUGS (4)
  1. CELEBREX [Suspect]
     Indication: RHEUMATOID ARTHRITIS
     Dosage: 400 MG, DAILY
  2. LISINOPRIL [Interacting]
     Indication: HYPERTENSION
     Dosage: 10 MG, 1X/DAY
     Dates: start: 2012
  3. SYNTHROID [Concomitant]
     Indication: HYPOTHYROIDISM
     Dosage: 150 UG, UNK
  4. PREDNISONE [Concomitant]
     Indication: RHEUMATOID ARTHRITIS
     Dosage: UNK

REACTIONS (14)
  - Hypertension [Unknown]
  - Post procedural haemorrhage [Unknown]
  - Weight decreased [Unknown]
  - Tooth disorder [Unknown]
  - Drug interaction [Unknown]
  - Asthenia [Recovering/Resolving]
  - Fatigue [Recovering/Resolving]
  - Feeling abnormal [Unknown]
  - Contusion [Unknown]
  - Dizziness [Unknown]
  - Muscular weakness [Unknown]
  - Dyspnoea [Unknown]
  - Urinary tract disorder [Unknown]
  - Speech disorder [Unknown]
